FAERS Safety Report 8803161 (Version 1)
Quarter: 2012Q4

REPORT INFORMATION
  Report Type: Report from Study
  Country: CA (occurrence: CA)
  Receive Date: 20120924
  Receipt Date: 20120924
  Transmission Date: 20130627
  Serious: Yes (Other)
  Sender: FDA-Public Use
  Company Number: CA-JNJFOC-20120907141

PATIENT
  Age: 42 Year
  Sex: Male
  Weight: 91 kg

DRUGS (4)
  1. REMICADE [Suspect]
     Indication: COLITIS ULCERATIVE
     Route: 042
     Dates: start: 201208
  2. IMURAN [Concomitant]
     Route: 065
  3. PENTASA [Concomitant]
     Route: 065
  4. PERCOCET [Concomitant]
     Route: 065

REACTIONS (4)
  - Dizziness [Recovering/Resolving]
  - Pallor [Not Recovered/Not Resolved]
  - Nausea [Recovering/Resolving]
  - Procedural pain [Not Recovered/Not Resolved]
